FAERS Safety Report 4888129-5 (Version None)
Quarter: 2006Q1

REPORT INFORMATION
  Report Type: 
  Country: None (occurrence: None)
  Receive Date: 20060123
  Receipt Date: 20051216
  Transmission Date: 20060701
  Serious: Yes (Other)
  Sender: FDA-Public Use
  Company Number: US-MERCK-0512USA02516

PATIENT
  Age: 85 Year
  Sex: Female

DRUGS (1)
  1. COSOPT [Suspect]
     Indication: OPEN ANGLE GLAUCOMA
     Route: 047
     Dates: start: 20051121, end: 20051123

REACTIONS (1)
  - ANGLE CLOSURE GLAUCOMA [None]
